FAERS Safety Report 25970121 (Version 3)
Quarter: 2025Q4

REPORT INFORMATION
  Report Type: Spontaneous
  Country: JP (occurrence: JP)
  Receive Date: 20251028
  Receipt Date: 20251226
  Transmission Date: 20260118
  Serious: Yes (Death, Other)
  Sender: ALEXION PHARMACEUTICALS
  Company Number: JP-AstraZeneca-CH-00977601A

PATIENT
  Age: 79 Year
  Sex: Female
  Weight: 46 kg

DRUGS (4)
  1. SOLIRIS [Suspect]
     Active Substance: ECULIZUMAB
     Indication: Myasthenia gravis
     Dosage: 900 MILLIGRAM, SIX TIMES
     Dates: start: 20250724, end: 20250904
  2. PREDONINE [Concomitant]
     Active Substance: PREDNISOLONE
     Indication: Myasthenia gravis
     Dosage: 10 MILLIGRAM, QD
     Route: 061
     Dates: start: 20250711, end: 20250903
  3. TACROLIMUS [Concomitant]
     Active Substance: TACROLIMUS
     Dosage: UNK
  4. Immunoglobulin [Concomitant]
     Indication: Myasthenia gravis
     Dosage: UNK

REACTIONS (3)
  - Malignant neoplasm progression [Fatal]
  - Upper gastrointestinal perforation [Fatal]
  - Peritonitis [Fatal]
